FAERS Safety Report 20331207 (Version 8)
Quarter: 2022Q2

REPORT INFORMATION
  Report Type: Report from Study
  Country: US (occurrence: US)
  Receive Date: 20220113
  Receipt Date: 20220510
  Transmission Date: 20220721
  Serious: Yes (Other)
  Sender: FDA-Public Use
  Company Number: US-NOVARTISTESTPH-NVSC2022US005382

PATIENT
  Sex: Female

DRUGS (1)
  1. PIQRAY [Suspect]
     Active Substance: ALPELISIB
     Indication: Breast cancer
     Dosage: 200 MG, QD
     Route: 048
     Dates: start: 202112

REACTIONS (14)
  - Pulmonary oedema [Unknown]
  - Malaise [Unknown]
  - Throat tightness [Unknown]
  - Cough [Unknown]
  - Tumour marker decreased [Unknown]
  - Abdominal discomfort [Unknown]
  - Aphonia [Unknown]
  - Dizziness [Unknown]
  - Diarrhoea [Recovering/Resolving]
  - Insomnia [Unknown]
  - Vomiting [Unknown]
  - Urinary tract infection [Unknown]
  - Nausea [Unknown]
  - Weight decreased [Unknown]
